FAERS Safety Report 9193175 (Version 1)
Quarter: 2013Q1

REPORT INFORMATION
  Report Type: Spontaneous
  Country: FR (occurrence: FR)
  Receive Date: 20130327
  Receipt Date: 20130327
  Transmission Date: 20140127
  Serious: Yes (Hospitalization, Other)
  Sender: FDA-Public Use
  Company Number: FR-ABBOTT-13P-056-1065741-00

PATIENT
  Sex: Male

DRUGS (8)
  1. ANDROGEL [Suspect]
     Indication: LIBIDO DISORDER
     Route: 065
     Dates: start: 20080925, end: 20080925
  2. NEURONTIN [Suspect]
     Indication: PRODUCT USED FOR UNKNOWN INDICATION
     Dosage: 3200 MG (800MG AT 5PM, 2400MG IN THE EVENING)
     Route: 048
     Dates: start: 2007, end: 20080926
  3. SERESTA [Suspect]
     Indication: DEPRESSION
     Dosage: IN THE EVENING
     Route: 048
     Dates: start: 2007, end: 20080926
  4. RIVOTRIL [Suspect]
     Indication: DEPRESSION
     Dosage: IN THE EVENING
     Route: 048
     Dates: start: 2007, end: 20080926
  5. VIAGRA [Concomitant]
     Indication: ERECTILE DYSFUNCTION
     Route: 048
     Dates: start: 20080925, end: 20080925
  6. MUSE [Concomitant]
     Indication: ERECTILE DYSFUNCTION
     Dosage: ROUTE I.U.
     Dates: start: 20080925, end: 20080925
  7. ATARAX [Concomitant]
     Indication: ANXIETY
     Dosage: IN THE EVENING
     Route: 048
     Dates: start: 2007, end: 20080926
  8. PARACETAMOL [Concomitant]
     Indication: PAIN
     Dosage: 3 G DAILY
     Route: 048
     Dates: start: 2007, end: 20080926

REACTIONS (5)
  - Anterograde amnesia [Recovered/Resolved]
  - Confusional state [Recovered/Resolved]
  - Aggression [Recovered/Resolved]
  - Suicide attempt [Recovered/Resolved]
  - Overdose [Recovered/Resolved]
